FAERS Safety Report 20503745 (Version 1)
Quarter: 2022Q1

REPORT INFORMATION
  Report Type: Spontaneous
  Country: US (occurrence: US)
  Receive Date: 20220222
  Receipt Date: 20220222
  Transmission Date: 20220423
  Serious: No
  Sender: FDA-Public Use
  Company Number: US-TAKEDA-2022TUS010377

PATIENT
  Sex: Female
  Weight: 57 kg

DRUGS (7)
  1. MOTEGRITY [Suspect]
     Active Substance: PRUCALOPRIDE SUCCINATE
     Indication: Constipation
     Dosage: UNK
     Route: 065
     Dates: start: 202101
  2. METHADONE [Concomitant]
     Active Substance: METHADONE HYDROCHLORIDE
  3. OXYCODONE [Concomitant]
     Active Substance: OXYCODONE
  4. MELOXICAM [Concomitant]
     Active Substance: MELOXICAM
  5. DRONABINOL [Concomitant]
     Active Substance: DRONABINOL
  6. ENBREL [Concomitant]
     Active Substance: ETANERCEPT
     Indication: Arthritis
  7. METHOTREXATE [Concomitant]
     Active Substance: METHOTREXATE

REACTIONS (2)
  - Inappropriate schedule of product administration [Unknown]
  - No adverse event [Unknown]
